FAERS Safety Report 22161954 (Version 2)
Quarter: 2023Q4

REPORT INFORMATION
  Report Type: Spontaneous
  Country: US (occurrence: US)
  Receive Date: 20230331
  Receipt Date: 20231228
  Transmission Date: 20240110
  Serious: Yes (Other)
  Sender: FDA-Public Use
  Company Number: US-PFIZER INC-PV202300058280

PATIENT
  Age: 86 Year
  Sex: Female

DRUGS (1)
  1. IBRANCE [Suspect]
     Active Substance: PALBOCICLIB
     Indication: Breast cancer stage IV
     Dosage: TAKE 1 TABLET BY MOUTH DAILY FOR 21 DAYS. THEN OFF 7 DAYS.
     Route: 048

REACTIONS (4)
  - Spinal compression fracture [Unknown]
  - Hypoacusis [Unknown]
  - Cardiac murmur [Unknown]
  - Decreased immune responsiveness [Unknown]
